FAERS Safety Report 6506263-0 (Version None)
Quarter: 2009Q4

REPORT INFORMATION
  Report Type: 
  Country: None (occurrence: None)
  Receive Date: 20091218
  Receipt Date: 20091208
  Transmission Date: 20100525
  Serious: Yes (Hospitalization)
  Sender: FDA-Public Use
  Company Number: FR-GENENTECH-292215

PATIENT
  Sex: Male
  Weight: 90 kg

DRUGS (16)
  1. RITUXIMAB [Suspect]
     Indication: ACUTE LYMPHOCYTIC LEUKAEMIA
     Dosage: 750 MG, QD
     Route: 042
     Dates: start: 20080929
  2. CYCLOPHOSPHAMIDE [Suspect]
     Indication: ACUTE LYMPHOCYTIC LEUKAEMIA
     Dosage: 1110 MG, QD
     Route: 042
     Dates: start: 20080829, end: 20080829
  3. ETOPOSIDE [Suspect]
     Indication: ACUTE LYMPHOCYTIC LEUKAEMIA
     Dosage: 166.5 MG, QD
     Route: 042
     Dates: start: 20080829, end: 20080829
  4. METHOTREXATE [Suspect]
     Indication: ACUTE LYMPHOCYTIC LEUKAEMIA
     Dosage: 6000 MG, QD
     Route: 042
     Dates: start: 20080927
  5. ZELITREX [Concomitant]
     Indication: ANTIVIRAL PROPHYLAXIS
     Dosage: 500 MG, BID
     Dates: start: 20080721
  6. LOVENOX [Concomitant]
     Indication: PROPHYLAXIS
     Dosage: 0.4 MG, QD
     Dates: start: 20080826
  7. OMEPRAZOLE [Concomitant]
     Indication: PROPHYLAXIS
     Dosage: 20 MG, QD
     Dates: start: 20080826
  8. STILNOX [Concomitant]
     Indication: ANXIETY
     Dosage: UNK
     Dates: start: 20080820
  9. GRANOCYTE [Concomitant]
     Indication: PROPHYLAXIS
     Dosage: 2636 A?G, QD
     Dates: start: 20080831, end: 20080901
  10. ASPARAGINASE [Suspect]
     Indication: ACUTE LYMPHOCYTIC LEUKAEMIA
     Dosage: 20000 UNK, QD
     Route: 042
     Dates: start: 20080928
  11. VINDESINE [Suspect]
     Indication: ACUTE LYMPHOCYTIC LEUKAEMIA
     Dosage: 4 MG, QD
     Route: 042
     Dates: start: 20080927
  12. PURINETHOL [Suspect]
     Indication: ACUTE LYMPHOCYTIC LEUKAEMIA
     Dosage: 125 MG, QD
     Route: 042
     Dates: start: 20080927, end: 20081021
  13. PURINETHOL [Suspect]
     Dosage: 125 MG, QD
     Dates: start: 20081028, end: 20081101
  14. NEXIUM [Concomitant]
     Dosage: UNK
     Route: 048
     Dates: start: 20080718
  15. MAXEPA [Concomitant]
     Dosage: UNK
     Route: 048
     Dates: start: 20080101
  16. SMECTA [Suspect]
     Dosage: UNK
     Route: 048
     Dates: start: 20080101

REACTIONS (2)
  - FEBRILE BONE MARROW APLASIA [None]
  - PYREXIA [None]
